FAERS Safety Report 10626437 (Version 1)
Quarter: 2014Q4

REPORT INFORMATION
  Report Type: Spontaneous
  Country: US (occurrence: US)
  Receive Date: 20141204
  Receipt Date: 20141204
  Transmission Date: 20150529
  Serious: No
  Sender: FDA-Public Use
  Company Number: US-TARO-2014P1003128

PATIENT
  Sex: Female

DRUGS (4)
  1. CLIMARA ESTROGEN PATCH [Concomitant]
  2. TOPICORT [Suspect]
     Active Substance: DESOXIMETASONE
     Indication: PRURITUS
     Route: 061
     Dates: start: 20140404, end: 20140406
  3. SYNTHROID [Concomitant]
     Active Substance: LEVOTHYROXINE SODIUM
  4. CLARINEX [Concomitant]
     Active Substance: DESLORATADINE

REACTIONS (1)
  - Rash erythematous [Not Recovered/Not Resolved]

NARRATIVE: CASE EVENT DATE: 20140406
